FAERS Safety Report 18298479 (Version 3)
Quarter: 2021Q3

REPORT INFORMATION
  Report Type: Spontaneous
  Country: US (occurrence: US)
  Receive Date: 20200922
  Receipt Date: 20210922
  Transmission Date: 20211014
  Serious: Yes (Other)
  Sender: FDA-Public Use
  Company Number: US-PFIZER INC-2017465014

PATIENT
  Age: 32 Year
  Sex: Male
  Weight: 126.98 kg

DRUGS (5)
  1. XYNTHA [Suspect]
     Active Substance: ANTIHEMOPHILIC FACTOR, HUMAN RECOMBINANT RESIDUES 743-1636 DELETED
     Indication: FACTOR VIII DEFICIENCY
     Dosage: INFUSE 2170 UNITS (+/?10% AS NEEDED FOR MILD BLEEDS, INFUSE 4340 UNITS (+/?10%) FOR SEVERE BLEEDS
     Route: 042
     Dates: start: 201902
  2. HEMLIBRA [Concomitant]
     Active Substance: EMICIZUMAB-KXWH
     Dosage: 180 MG, WEEKLY
     Route: 058
     Dates: start: 20200920
  3. LYRICA [Concomitant]
     Active Substance: PREGABALIN
  4. MELOXICAM. [Concomitant]
     Active Substance: MELOXICAM
  5. OMEPRAZOLE. [Concomitant]
     Active Substance: OMEPRAZOLE

REACTIONS (3)
  - Haemorrhage [Unknown]
  - Fall [Unknown]
  - Haemarthrosis [Unknown]
